FAERS Safety Report 20692575 (Version 1)
Quarter: 2022Q2

REPORT INFORMATION
  Report Type: Spontaneous
  Country: US (occurrence: None)
  Receive Date: 20220407
  Receipt Date: 20220407
  Transmission Date: 20220721
  Serious: No
  Sender: FDA-Public Use
  Company Number: None

PATIENT
  Sex: Female
  Weight: 68.04 kg

DRUGS (5)
  1. IBRANCE [Suspect]
     Active Substance: PALBOCICLIB
     Indication: Breast cancer
     Dosage: FREQUENCY : DAILY;?
     Route: 048
  2. LEXAPRO [Concomitant]
  3. GABAPENTIN [Concomitant]
  4. ATORVASTATIN CALCIUM [Concomitant]
  5. LETROZOLE [Concomitant]

REACTIONS (1)
  - Interstitial lung disease [None]
